FAERS Safety Report 9996085 (Version 1)
Quarter: 2014Q1

REPORT INFORMATION
  Report Type: Spontaneous
  Country: US (occurrence: None)
  Receive Date: 20140218
  Receipt Date: 20140218
  Transmission Date: 20141002
  Serious: No
  Sender: FDA-Public Use
  Company Number: 1000050475

PATIENT
  Age: 50 Year
  Sex: Female

DRUGS (8)
  1. VIIBRYD [Suspect]
     Indication: DEPRESSION
     Route: 048
     Dates: start: 20131002, end: 20131008
  2. VIIBRYD [Suspect]
     Indication: ANXIETY
     Route: 048
     Dates: start: 20131002, end: 20131008
  3. MELATONIN (MELATONIN) [Suspect]
     Indication: INSOMNIA
     Dates: end: 2013
  4. PAXIL [Suspect]
     Indication: DEPRESSION
     Dates: start: 2013, end: 201310
  5. PAXIL [Suspect]
     Indication: ANXIETY
     Dates: start: 2013, end: 201310
  6. LISINOPRIL (LISINOPRIL) (LISINOPRIL) [Concomitant]
  7. ATIVAN (LORAZEPAM) (LORAZEPAM) [Concomitant]
  8. KLONOPIN (CLONAZEPAM) (CLONAZEPAM) [Concomitant]

REACTIONS (8)
  - Paraesthesia [None]
  - Insomnia [None]
  - Anxiety [None]
  - Restlessness [None]
  - Abnormal dreams [None]
  - Panic attack [None]
  - Feeling jittery [None]
  - Off label use [None]
